FAERS Safety Report 8456669-8 (Version None)
Quarter: 2012Q2

REPORT INFORMATION
  Report Type: 
  Country: None (occurrence: None)
  Receive Date: 20120621
  Receipt Date: 20120615
  Transmission Date: 20120825
  Serious: Yes (Hospitalization)
  Sender: FDA-Public Use
  Company Number: DK-AMGEN-DNKSP2012019206

PATIENT
  Age: 65 Year
  Sex: Female
  Weight: 74 kg

DRUGS (17)
  1. ACETAMINOPHEN [Concomitant]
     Indication: PAIN
     Dosage: 1000 MG, UNK
     Route: 048
     Dates: start: 20120213, end: 20120213
  2. CLEMASTINE FUMARATE [Concomitant]
     Dosage: 2 MG, UNK
     Route: 048
     Dates: start: 20120213, end: 20120213
  3. RITUXIMAB [Concomitant]
     Indication: DIFFUSE LARGE B-CELL LYMPHOMA
     Dosage: 693 MG, UNK
     Route: 042
     Dates: start: 20120207
  4. LANSOPRAZOLE [Concomitant]
     Dosage: 30 MG, UNK
     Route: 048
     Dates: start: 20120113
  5. BACTRIM [Concomitant]
     Indication: INFECTION
     Dosage: UNK
     Route: 048
     Dates: start: 20120207
  6. CLEMASTINE FUMARATE [Concomitant]
     Dosage: 2 MG, UNK
     Route: 048
     Dates: start: 20120207, end: 20120207
  7. CLEMASTINE FUMARATE [Concomitant]
     Dosage: 2 MG, UNK
     Route: 048
     Dates: start: 20120227, end: 20120227
  8. CYCLOPHOSPHAMIDE [Concomitant]
     Indication: DIFFUSE LARGE B-CELL LYMPHOMA
     Dosage: 1400 MG, UNK
     Route: 042
     Dates: start: 20120207
  9. VINCRISTINE [Concomitant]
     Indication: DIFFUSE LARGE B-CELL LYMPHOMA
     Dosage: 2 MG, UNK
     Route: 042
     Dates: start: 20120207
  10. ACYCLOVIR [Concomitant]
     Indication: INFECTION
     Dosage: 400 MG, UNK
     Route: 048
     Dates: start: 20120207
  11. ACETAMINOPHEN [Concomitant]
     Dosage: 1000 MG, UNK
     Route: 048
     Dates: start: 20120227, end: 20120227
  12. PEGFILGRASTIM [Suspect]
     Indication: DIFFUSE LARGE B-CELL LYMPHOMA
     Dosage: 6 MG, UNK
     Route: 058
     Dates: start: 20120210
  13. DOXORUBICIN HCL [Concomitant]
     Indication: DIFFUSE LARGE B-CELL LYMPHOMA
     Dosage: 90 MG, UNK
     Route: 042
     Dates: start: 20120207
  14. PREDNISONE TAB [Concomitant]
     Indication: DIFFUSE LARGE B-CELL LYMPHOMA
     Dosage: 500 MG, UNK
     Route: 048
     Dates: start: 20120207
  15. ONDANSETRON [Concomitant]
     Indication: NAUSEA
     Dosage: 8 MG, UNK
     Route: 048
     Dates: start: 20120207, end: 20120208
  16. CLEMASTINE FUMARATE [Concomitant]
     Dosage: 2 MG, UNK
     Route: 048
     Dates: start: 20120220, end: 20120220
  17. ACETAMINOPHEN [Concomitant]
     Dosage: 1000 MG, UNK
     Route: 048
     Dates: start: 20120220, end: 20120220

REACTIONS (1)
  - PULMONARY EMBOLISM [None]
